FAERS Safety Report 7134533-4 (Version None)
Quarter: 2010Q4

REPORT INFORMATION
  Report Type: 
  Country: None (occurrence: None)
  Receive Date: 20101203
  Receipt Date: 20101125
  Transmission Date: 20110411
  Serious: Yes (Other)
  Sender: FDA-Public Use
  Company Number: US-PFIZER INC-2010153646

PATIENT
  Sex: Female

DRUGS (2)
  1. CHANTIX [Suspect]
     Indication: SMOKING CESSATION THERAPY
     Dosage: UNK
  2. XANAX [Concomitant]
     Indication: ANXIETY
     Dosage: UNK

REACTIONS (2)
  - MOOD ALTERED [None]
  - VIOLENCE-RELATED SYMPTOM [None]
